FAERS Safety Report 25543788 (Version 1)
Quarter: 2025Q3

REPORT INFORMATION
  Report Type: Other
  Country: ZA (occurrence: ZA)
  Receive Date: 20250711
  Receipt Date: 20250711
  Transmission Date: 20251020
  Serious: Yes (Hospitalization, Other)
  Sender: ANI
  Company Number: ZA-ANIPHARMA-023458

PATIENT
  Age: 38 Year
  Sex: Female

DRUGS (4)
  1. VANCOMYCIN [Suspect]
     Active Substance: VANCOMYCIN
     Indication: Corynebacterium infection
  2. GENTAMICIN [Concomitant]
     Active Substance: GENTAMICIN
     Indication: Corynebacterium infection
  3. PENICILLIN G [Concomitant]
     Active Substance: PENICILLIN G
     Indication: Corynebacterium infection
  4. GENTAMICIN [Concomitant]
     Active Substance: GENTAMICIN
     Indication: Corynebacterium infection

REACTIONS (1)
  - Renal failure [Unknown]
